FAERS Safety Report 9196022 (Version 3)
Quarter: 2013Q2

REPORT INFORMATION
  Report Type: Spontaneous
  Country: DE (occurrence: DE)
  Receive Date: 20130328
  Receipt Date: 20130522
  Transmission Date: 20140414
  Serious: Yes (Hospitalization)
  Sender: FDA-Public Use
  Company Number: DE-AMGEN-DEUSP2013021492

PATIENT
  Age: 52 Year
  Sex: Male

DRUGS (6)
  1. ENBREL [Suspect]
     Indication: PSORIASIS
     Dosage: 50 MG, WEEKLY
     Dates: start: 20091021, end: 20121010
  2. ENBREL [Suspect]
     Dosage: 50 MG, WEEKLY
     Dates: start: 201210, end: 20130103
  3. AMLODIPINE [Concomitant]
     Dosage: UNK
  4. MYDOCALM                           /00293002/ [Concomitant]
     Dosage: UNK
  5. METFORMIN [Concomitant]
     Dosage: UNK
  6. IBUPROFEN [Concomitant]
     Dosage: UNK

REACTIONS (1)
  - Cataract [Recovered/Resolved with Sequelae]
